FAERS Safety Report 19713333 (Version 2)
Quarter: 2023Q4

REPORT INFORMATION
  Report Type: Report from Study
  Country: US (occurrence: US)
  Receive Date: 20210817
  Receipt Date: 20231019
  Transmission Date: 20240110
  Serious: Yes (Other)
  Sender: FDA-Public Use
  Company Number: US-JAZZ-2021-US-003344

PATIENT
  Age: 46 Year
  Sex: Female

DRUGS (3)
  1. XYREM [Suspect]
     Active Substance: SODIUM OXYBATE
     Indication: Narcolepsy
     Dosage: 2.25 GRAM, BID
     Route: 048
     Dates: start: 201512, end: 201512
  2. XYREM [Suspect]
     Active Substance: SODIUM OXYBATE
     Indication: Cataplexy
     Dosage: DOSE ADJUSTMENT
     Route: 048
     Dates: start: 201512, end: 201602
  3. XYREM [Suspect]
     Active Substance: SODIUM OXYBATE
     Dosage: 4.5 GRAM, BID
     Route: 048
     Dates: start: 201602

REACTIONS (6)
  - Spinal fracture [Unknown]
  - Somnambulism [Unknown]
  - Stress [Unknown]
  - Limb injury [Unknown]
  - Abnormal sleep-related event [Unknown]
  - Product preparation error [Unknown]

NARRATIVE: CASE EVENT DATE: 20200214
